FAERS Safety Report 4462901-8 (Version None)
Quarter: 2004Q3

REPORT INFORMATION
  Report Type: 
  Country: None (occurrence: None)
  Receive Date: 20040927
  Receipt Date: 20040916
  Transmission Date: 20050211
  Serious: Yes (Death, Hospitalization)
  Sender: FDA-Public Use
  Company Number: 2004-05-0636

PATIENT
  Age: 40 Year
  Sex: Female
  Weight: 60 kg

DRUGS (3)
  1. INTRON A [Suspect]
     Indication: HEPATITIS C
     Dosage: 6 MU*QD-TIW INTRAMUSCULA
     Route: 030
     Dates: start: 20030310, end: 20040412
  2. REBETOL [Suspect]
     Indication: HEPATITIS C
     Dosage: 200 MG QD ORAL
     Route: 048
     Dates: start: 20030310, end: 20030825
  3. CLARITIN [Concomitant]

REACTIONS (6)
  - ALOPECIA [None]
  - BRONCHITIS [None]
  - CIRCULATORY COLLAPSE [None]
  - NASOPHARYNGITIS [None]
  - RUPTURED CEREBRAL ANEURYSM [None]
  - SUBARACHNOID HAEMORRHAGE [None]
